FAERS Safety Report 6439476-7 (Version None)
Quarter: 2009Q4

REPORT INFORMATION
  Report Type: 
  Country: None (occurrence: None)
  Receive Date: 20091113
  Receipt Date: 20091103
  Transmission Date: 20100525
  Serious: Yes (Other)
  Sender: FDA-Public Use
  Company Number: US-SOLVAY-00209006638

PATIENT
  Age: 59 Year
  Sex: Female
  Weight: 65.909 kg

DRUGS (4)
  1. PANTOPRAZOLE [Concomitant]
     Indication: DRUG USE FOR UNKNOWN INDICATION
     Dosage: DAILY DOSE:  UNKNOWN
     Route: 065
  2. PROMETRIUM [Suspect]
     Indication: MENORRHAGIA
     Dosage: DAILY DOSE:  UNKNOWN 100 MILLIGRAM(S)
     Route: 065
     Dates: start: 20090101, end: 20090901
  3. ESTROGENS CONJUGATED [Concomitant]
     Indication: HORMONE REPLACEMENT THERAPY
     Dosage: DAILY DOSE: .625 MILLIGRAM(S)
     Route: 065
  4. SYNTHROID [Suspect]
     Indication: HYPOTHYROIDISM
     Dosage: DAILY DOSE:  UNKNOWN
     Route: 065
     Dates: start: 20090401, end: 20090929

REACTIONS (4)
  - MENORRHAGIA [None]
  - UTERINE LEIOMYOMA [None]
  - UTERINE POLYP [None]
  - VISION BLURRED [None]
